FAERS Safety Report 22820882 (Version 2)
Quarter: 2023Q4

REPORT INFORMATION
  Report Type: Spontaneous
  Country: DE (occurrence: DE)
  Receive Date: 20230814
  Receipt Date: 20231117
  Transmission Date: 20240110
  Serious: Yes (Other)
  Sender: FDA-Public Use
  Company Number: DE-SANDOZ-SDZ2023DE003769

PATIENT
  Age: 61 Year
  Sex: Male
  Weight: 103 kg

DRUGS (18)
  1. BORTEZOMIB [Suspect]
     Active Substance: BORTEZOMIB
     Indication: Plasma cell myeloma
     Dosage: 2.6 MG (FREQUENCY TEXT: NOT PROVIDED )
     Route: 065
     Dates: start: 20210424, end: 20210701
  2. BORTEZOMIB [Suspect]
     Active Substance: BORTEZOMIB
     Dosage: 2.6 MG (FREQUENCY TEXT: NOT PROVIDED)
     Route: 065
     Dates: start: 20210427
  3. BORTEZOMIB [Suspect]
     Active Substance: BORTEZOMIB
     Dosage: 2.6 MG (FREQUENCY TEXT: NOT PROVIDED)
     Route: 065
     Dates: start: 20210701
  4. THALIDOMIDE [Suspect]
     Active Substance: THALIDOMIDE
     Indication: Plasma cell myeloma
     Dosage: 100 MG (FREQUENCY TEXT: NOT PROVIDED)
     Route: 065
     Dates: start: 20210424, end: 20210815
  5. THALIDOMIDE [Suspect]
     Active Substance: THALIDOMIDE
     Dosage: 100 MG (FREQUENCY: NOT PROVIDED)
     Route: 065
     Dates: start: 20210427
  6. DEXAMETHASONE [Suspect]
     Active Substance: DEXAMETHASONE
     Indication: Plasma cell myeloma
     Dosage: 40 MG (FREQUENCY TEXT: NOT PROVIDED)
     Route: 065
     Dates: start: 20210427
  7. DEXAMETHASONE [Suspect]
     Active Substance: DEXAMETHASONE
     Dosage: 40 MG (FREQUENCY TEXT: NOT PROVIDED)
     Route: 065
     Dates: start: 20210424, end: 20210803
  8. REVLIMID [Suspect]
     Active Substance: LENALIDOMIDE
     Indication: Plasma cell myeloma
     Dosage: 10 MILLIGRAM
     Route: 065
     Dates: start: 20220310, end: 20220831
  9. REVLIMID [Suspect]
     Active Substance: LENALIDOMIDE
     Dosage: 10 MILLIGRAM
     Route: 065
     Dates: start: 20220310, end: 20230115
  10. DARATUMUMAB [Suspect]
     Active Substance: DARATUMUMAB
     Indication: Plasma cell myeloma
     Dosage: 1648 MG (FREQUENCY: NOT PROVIDED)
     Route: 065
     Dates: start: 20210427
  11. DARATUMUMAB [Suspect]
     Active Substance: DARATUMUMAB
     Dosage: 1648 MG (FREQUENCY: NOT PROVIDED)
     Route: 065
     Dates: start: 20210424, end: 20210802
  12. MONTELUKAST [Concomitant]
     Active Substance: MONTELUKAST SODIUM
     Indication: Product used for unknown indication
     Dosage: 10 MG, QW
     Route: 048
     Dates: start: 20210427
  13. CLEMASTINE FUMARATE [Concomitant]
     Active Substance: CLEMASTINE FUMARATE
     Indication: Product used for unknown indication
     Dosage: 2 MG, QW
     Route: 042
  14. CANDESARTAN [Concomitant]
     Active Substance: CANDESARTAN
     Indication: Product used for unknown indication
     Dosage: 16 MG, QD (16 MG, QD)
     Route: 048
  15. ALLOPURINOL [Concomitant]
     Active Substance: ALLOPURINOL
     Indication: Product used for unknown indication
     Dosage: 200 MG, QD
     Route: 048
  16. ACETAMINOPHEN [Concomitant]
     Active Substance: ACETAMINOPHEN
     Indication: Product used for unknown indication
     Dosage: 1000 MG, QW
     Route: 048
     Dates: start: 20210427, end: 20220802
  17. XARELTO [Concomitant]
     Active Substance: RIVAROXABAN
     Indication: Product used for unknown indication
     Dosage: 10 MG, QD
     Route: 048
     Dates: start: 20210427
  18. XARELTO [Concomitant]
     Active Substance: RIVAROXABAN
     Dosage: 10 MG, QD
     Route: 048

REACTIONS (4)
  - Neuropathy peripheral [Not Recovered/Not Resolved]
  - Hypotension [Recovering/Resolving]
  - Epistaxis [Recovered/Resolved]
  - Off label use [Unknown]

NARRATIVE: CASE EVENT DATE: 20210615
